FAERS Safety Report 8103004-0 (Version None)
Quarter: 2012Q1

REPORT INFORMATION
  Report Type: 
  Country: None (occurrence: None)
  Receive Date: 20120201
  Receipt Date: 20120125
  Transmission Date: 20120608
  Serious: Yes (Hospitalization, Other)
  Sender: FDA-Public Use
  Company Number: UA-TEVA-319724ISR

PATIENT
  Sex: Male
  Weight: 93.7 kg

DRUGS (4)
  1. SERRATA (ALL OTHER THERAPEUTIC PRODUCTS) [Concomitant]
     Indication: DEEP VEIN THROMBOSIS
     Dosage: 30 MILLIGRAM; 10 MG NR
     Route: 048
     Dates: start: 20080917
  2. WARFARIN SODIUM [Suspect]
     Route: 048
     Dates: start: 20081021
  3. WARFARIN SODIUM [Suspect]
     Indication: DEEP VEIN THROMBOSIS
     Route: 048
     Dates: start: 20080918, end: 20081014
  4. DETRALEX [Concomitant]
     Dosage: 1000 MILLIGRAM; 500 NR
     Route: 048
     Dates: start: 20080917

REACTIONS (2)
  - OTITIS MEDIA CHRONIC [None]
  - EAR HAEMORRHAGE [None]
